FAERS Safety Report 19152144 (Version 1)
Quarter: 2021Q2

REPORT INFORMATION
  Report Type: Spontaneous
  Country: US (occurrence: US)
  Receive Date: 20210416
  Receipt Date: 20210416
  Transmission Date: 20210717
  Serious: No
  Sender: FDA-Public Use
  Company Number: None

PATIENT
  Age: 29 Year
  Sex: Female

DRUGS (1)
  1. TAFINLAR [Suspect]
     Active Substance: DABRAFENIB MESYLATE
     Route: 048
     Dates: start: 202103

REACTIONS (4)
  - Pain in extremity [None]
  - Arthralgia [None]
  - Myalgia [None]
  - Erythema [None]

NARRATIVE: CASE EVENT DATE: 20210414
